FAERS Safety Report 16454095 (Version 13)
Quarter: 2020Q3

REPORT INFORMATION
  Report Type: Report from Study
  Country: CN (occurrence: CN)
  Receive Date: 20190619
  Receipt Date: 20200903
  Transmission Date: 20201102
  Serious: Yes (Death, Hospitalization)
  Sender: FDA-Public Use
  Company Number: CN-PFIZER INC-2019257841

PATIENT
  Age: 67 Year
  Sex: Male
  Weight: 70 kg

DRUGS (7)
  1. ENZALUTAMIDE [Suspect]
     Active Substance: ENZALUTAMIDE
     Dosage: 480 MG, ONCE
     Route: 048
     Dates: end: 20200603
  2. ESTRAMUSTINE SODIUM PHOSPHATE [Suspect]
     Active Substance: ESTRAMUSTINE PHOSPHATE SODIUM
     Dosage: 280 MG, 1X/DAY
     Route: 048
     Dates: start: 20190617, end: 20190702
  3. HERBAL NOS [Concomitant]
     Active Substance: HERBALS
     Indication: GASTROOESOPHAGEAL REFLUX DISEASE
     Dosage: 1 SPOON TWICE
     Route: 048
     Dates: start: 20190522
  4. ESTRAMUSTINE PHOSPHATE [Concomitant]
     Active Substance: ESTRAMUSTINE PHOSPHATE
     Indication: PROSTATIC SPECIFIC ANTIGEN INCREASED
     Dosage: UNK UNK, UNKNOWN FREQ.
     Route: 065
  5. ENZALUTAMIDE [Suspect]
     Active Substance: ENZALUTAMIDE
     Indication: PROSTATE CANCER
     Dosage: 480 MG, SINGLE
     Route: 048
  6. ENZALUTAMIDE [Suspect]
     Active Substance: ENZALUTAMIDE
     Indication: PROSTATE CANCER
     Dosage: UNK UNK, UNKNOWN FREQ.
     Route: 048
     Dates: start: 20150825
  7. ESTRAMUSTINE SODIUM PHOSPHATE [Suspect]
     Active Substance: ESTRAMUSTINE PHOSPHATE SODIUM
     Indication: PROSTATE CANCER
     Dosage: 280 MG, 2X/DAY
     Route: 048
     Dates: start: 20190601, end: 20190614

REACTIONS (5)
  - Myocardial infarction [Recovered/Resolved]
  - Bone pain [Recovered/Resolved]
  - Abdominal discomfort [Recovered/Resolved]
  - Cardiopulmonary failure [Fatal]
  - Biliary obstruction [Fatal]

NARRATIVE: CASE EVENT DATE: 20190527
